FAERS Safety Report 11500147 (Version 4)
Quarter: 2017Q2

REPORT INFORMATION
  Report Type: Report from Study
  Country: KR (occurrence: KR)
  Receive Date: 20150914
  Receipt Date: 20170626
  Transmission Date: 20170829
  Serious: Yes (Death)
  Sender: FDA-Public Use
  Company Number: KR-OTSUKA-2015_009418

PATIENT
  Age: 90 Year
  Sex: Female

DRUGS (7)
  1. PREGREL [Concomitant]
     Indication: PRE-EXISTING DISEASE
     Dosage: 75 MG, QD
     Route: 048
     Dates: start: 20150802, end: 20150805
  2. SAMSCA [Suspect]
     Active Substance: TOLVAPTAN
     Indication: HYPERVOLAEMIA
     Dosage: 7.5 MG, QD
     Route: 048
     Dates: start: 20150805
  3. COMBIFLEX   PERI [Concomitant]
     Indication: PRE-EXISTING DISEASE
     Dosage: 1 OTHER, QD
     Route: 042
     Dates: start: 20150802, end: 20150806
  4. ITOMED [Concomitant]
     Indication: PROPHYLAXIS
     Dosage: 100 MG, QD
     Route: 048
     Dates: start: 20150804, end: 20150806
  5. LANSTON LFDT [Concomitant]
     Active Substance: LANSOPRAZOLE
     Indication: PROPHYLAXIS
     Dosage: 15 MG, QD
     Route: 048
     Dates: start: 20150804, end: 20150806
  6. SAMSCA [Suspect]
     Active Substance: TOLVAPTAN
     Indication: HYPONATRAEMIA
  7. CORDARONE [Concomitant]
     Active Substance: AMIODARONE HYDROCHLORIDE
     Indication: PRE-EXISTING DISEASE
     Dosage: 100 MG, QD
     Route: 048
     Dates: start: 20150804, end: 20150805

REACTIONS (2)
  - Cardiac failure [Fatal]
  - Underdose [Unknown]

NARRATIVE: CASE EVENT DATE: 20150805
